FAERS Safety Report 24079116 (Version 1)
Quarter: 2024Q3

REPORT INFORMATION
  Report Type: Spontaneous
  Country: CA (occurrence: CA)
  Receive Date: 20240711
  Receipt Date: 20240711
  Transmission Date: 20241016
  Serious: Yes (Death, Other)
  Sender: FRESENIUS KABI
  Company Number: CA-FreseniusKabi-FK202410782

PATIENT
  Age: 63 Year
  Sex: Male
  Weight: 54 kg

DRUGS (3)
  1. VANCOMYCIN [Suspect]
     Active Substance: VANCOMYCIN
     Indication: Product used for unknown indication
     Dosage: FORM OF ADMIN.- NOT SPECIFIED
  2. CEFTRIAXONE SODIUM [Suspect]
     Active Substance: CEFTRIAXONE SODIUM
     Indication: Product used for unknown indication
     Dosage: FORM OF ADMIN.- POWDER FOR SOLUTION INTRAVENOUS
  3. IMIPENEM AND CILASTATIN [Suspect]
     Active Substance: CILASTATIN SODIUM\IMIPENEM
     Indication: Product used for unknown indication
     Dosage: FORM OF ADMIN.- POWDER FOR SOLUTION INTRAVENOUS

REACTIONS (3)
  - Drug reaction with eosinophilia and systemic symptoms [Fatal]
  - Eosinophilia [Fatal]
  - Rash [Fatal]
